FAERS Safety Report 4494296-8 (Version None)
Quarter: 2004Q4

REPORT INFORMATION
  Report Type: 
  Country: None (occurrence: None)
  Receive Date: 20041104
  Receipt Date: 20041104
  Transmission Date: 20050328
  Serious: Yes (Other)
  Sender: FDA-Public Use
  Company Number: None

PATIENT
  Sex: Female
  Weight: 65.7716 kg

DRUGS (2)
  1. NORINYL 1+35 28-DAY [Suspect]
     Indication: ENDOMETRIOSIS
     Dosage: 1 A DAY PO
     Route: 048
     Dates: start: 19900101
  2. GENERIC ON 1/35 [Suspect]
     Indication: PELVIC PAIN
     Dosage: 1 A DAY PO [SEVERAL MONTHS]
     Route: 048

REACTIONS (3)
  - HEADACHE [None]
  - NAUSEA [None]
  - PHARMACEUTICAL PRODUCT COMPLAINT [None]
